FAERS Safety Report 7469848-3 (Version None)
Quarter: 2011Q2

REPORT INFORMATION
  Report Type: 
  Country: None (occurrence: None)
  Receive Date: 20110510
  Receipt Date: 20110504
  Transmission Date: 20111010
  Serious: Yes (Hospitalization)
  Sender: FDA-Public Use
  Company Number: US-B.I. PHARMACEUTICALS,INC./RIDGEFIELD-2011-BP-02622BP

PATIENT
  Age: 84 Year
  Sex: Female

DRUGS (19)
  1. CILOSTAZOL [Concomitant]
     Dosage: 200 MG
     Route: 048
     Dates: end: 20110124
  2. PLAVIX [Concomitant]
     Dosage: 75 MG
     Route: 048
  3. ASPIRIN [Concomitant]
     Dosage: 81 MG
     Route: 048
  4. GLYB/METFORMIN [Concomitant]
     Route: 048
  5. TRAVATAN [Concomitant]
  6. SIMVASTATIN [Concomitant]
     Dosage: 40 MG
     Route: 048
  7. VITAMIN-MINERAL COMPOUND TAB [Concomitant]
  8. BETOPTIC [Concomitant]
  9. CARVEDILOL [Concomitant]
     Dosage: 12.5 MG
     Route: 048
  10. POTASSIUM [Concomitant]
  11. FISH OIL [Concomitant]
  12. CALCIUM [Concomitant]
  13. DIGOXIN [Concomitant]
     Dates: end: 20110124
  14. GLUCOPHAGE [Concomitant]
     Indication: DIABETES MELLITUS
     Route: 048
  15. JANUVIA [Concomitant]
     Dosage: 100 MG
     Route: 048
  16. LISINOPRIL [Concomitant]
     Dosage: 20 MG
     Route: 048
  17. VIGAMOX [Concomitant]
  18. PRADAXA [Suspect]
     Indication: ATRIAL FIBRILLATION
     Dosage: 300 MG
     Route: 048
     Dates: start: 20110105, end: 20110124
  19. CRANBERRY [Concomitant]

REACTIONS (11)
  - CHEST DISCOMFORT [None]
  - TACITURNITY [None]
  - GAIT DISTURBANCE [None]
  - BLOOD GLUCOSE INCREASED [None]
  - PERSONALITY CHANGE [None]
  - HYPERSOMNIA [None]
  - DECREASED APPETITE [None]
  - IMPULSIVE BEHAVIOUR [None]
  - ABNORMAL BEHAVIOUR [None]
  - MOOD ALTERED [None]
  - FALL [None]
